FAERS Safety Report 8310308-5 (Version None)
Quarter: 2012Q2

REPORT INFORMATION
  Report Type: 
  Country: None (occurrence: None)
  Receive Date: 20120425
  Receipt Date: 20120417
  Transmission Date: 20120825
  Serious: Yes (Other)
  Sender: FDA-Public Use
  Company Number: PHHY2012BR013136

PATIENT
  Sex: Female

DRUGS (2)
  1. EXFORGE HCT [Suspect]
     Indication: CARDIAC DISORDER
     Dosage: 1 DF (160/5/12.5 MG), DAILY
  2. EXFORGE HCT [Suspect]
     Dosage: 1 DF (160/5/12.5MG), BID (MORNING + NIGHT)

REACTIONS (5)
  - CHEST PAIN [None]
  - CARDIAC DISORDER [None]
  - BLOOD PRESSURE INCREASED [None]
  - FALL [None]
  - PAIN [None]
